FAERS Safety Report 13784178 (Version 2)
Quarter: 2017Q3

REPORT INFORMATION
  Report Type: Spontaneous
  Country: AT (occurrence: AT)
  Receive Date: 20170724
  Receipt Date: 20170725
  Transmission Date: 20171127
  Serious: Yes (Death, Hospitalization)
  Sender: FDA-Public Use
  Company Number: AT-UNITED THERAPEUTICS-UNT-2017-011005

PATIENT
  Age: 77 Year
  Sex: Male

DRUGS (3)
  1. DABIGATRAN [Suspect]
     Active Substance: DABIGATRAN
     Indication: ATRIAL FIBRILLATION
     Dosage: 110 MG, BID
     Route: 048
  2. FUROSEMIDE. [Concomitant]
     Active Substance: FUROSEMIDE
     Indication: PRODUCT USED FOR UNKNOWN INDICATION
     Dosage: 40 MG, BID
     Route: 065
  3. REMODULIN [Suspect]
     Active Substance: TREPROSTINIL
     Indication: PULMONARY ARTERIAL HYPERTENSION
     Dosage: UNK, CONTINUING
     Route: 041

REACTIONS (15)
  - Hyponatraemia [Unknown]
  - Leukocytosis [Unknown]
  - Heart rate increased [Unknown]
  - Asthenia [Unknown]
  - General physical health deterioration [Unknown]
  - Activated partial thromboplastin time prolonged [Unknown]
  - Hyperkalaemia [Unknown]
  - Dehydration [Unknown]
  - Product use issue [Unknown]
  - Multiple organ dysfunction syndrome [Unknown]
  - Disseminated intravascular coagulation [Fatal]
  - Acute kidney injury [Unknown]
  - Staphylococcal bacteraemia [Unknown]
  - Hypotension [Unknown]
  - C-reactive protein increased [Unknown]
